FAERS Safety Report 23110764 (Version 1)
Quarter: 2023Q4

REPORT INFORMATION
  Report Type: Report from Study
  Country: FR (occurrence: FR)
  Receive Date: 20231026
  Receipt Date: 20231026
  Transmission Date: 20240109
  Serious: Yes (Other)
  Sender: FDA-Public Use
  Company Number: FR-JAZZ PHARMACEUTICALS-2019-FR-009478

PATIENT

DRUGS (4)
  1. DEFITELIO [Suspect]
     Active Substance: DEFIBROTIDE SODIUM
     Indication: Prophylaxis
     Dosage: 25 MG/KG/DAY
     Route: 042
     Dates: start: 20190604, end: 20190703
  2. ENALAPRILAT [Concomitant]
     Active Substance: ENALAPRILAT
     Indication: Product used for unknown indication
  3. BUSULFAN [Concomitant]
     Active Substance: BUSULFAN
     Indication: Bone marrow conditioning regimen
  4. MELPHALAN [Concomitant]
     Active Substance: MELPHALAN
     Indication: Bone marrow conditioning regimen

REACTIONS (2)
  - Venoocclusive disease [Recovered/Resolved]
  - Off label use [Unknown]

NARRATIVE: CASE EVENT DATE: 20190618
